FAERS Safety Report 16029175 (Version 1)
Quarter: 2019Q1

REPORT INFORMATION
  Report Type: Spontaneous
  Country: US (occurrence: US)
  Receive Date: 20190205
  Receipt Date: 20190205
  Transmission Date: 20190418
  Serious: Yes (Hospitalization)
  Sender: FDA-Public Use
  Company Number: None

PATIENT
  Age: 35 Year
  Sex: Male
  Weight: 98.5 kg

DRUGS (5)
  1. METHOTREXATE. [Suspect]
     Active Substance: METHOTREXATE
     Dates: end: 20181115
  2. VINCRISTINE SULFATE. [Suspect]
     Active Substance: VINCRISTINE SULFATE
     Dates: end: 20190116
  3. ONCASPAR [Suspect]
     Active Substance: PEGASPARGASE
     Dates: end: 20190109
  4. CYTARABINE. [Suspect]
     Active Substance: CYTARABINE
     Dates: end: 20181222
  5. CYCLOPHOSPHAMIDE. [Suspect]
     Active Substance: CYCLOPHOSPHAMIDE
     Dates: end: 20181212

REACTIONS (20)
  - Anaemia [None]
  - Blood culture positive [None]
  - Leukaemia recurrent [None]
  - Enterocolitis infectious [None]
  - Gait disturbance [None]
  - Bone marrow infiltration [None]
  - Blood lactic acid decreased [None]
  - Constipation [None]
  - Ascites [None]
  - Transaminases increased [None]
  - Thrombocytopenia [None]
  - Leukaemia [None]
  - Malignant neoplasm progression [None]
  - Packed red blood cell transfusion [None]
  - Septic shock [None]
  - Muscular weakness [None]
  - Pain [None]
  - Steatohepatitis [None]
  - Presyncope [None]
  - Enterococcal infection [None]

NARRATIVE: CASE EVENT DATE: 20181226
